FAERS Safety Report 8491323-8 (Version None)
Quarter: 2012Q3

REPORT INFORMATION
  Report Type: 
  Country: None (occurrence: None)
  Receive Date: 20120706
  Receipt Date: 20120627
  Transmission Date: 20120928
  Serious: Yes (Other)
  Sender: FDA-Public Use
  Company Number: PHHY2009JP38259

PATIENT
  Sex: Female

DRUGS (6)
  1. FAMOTIDINE [Concomitant]
     Indication: PROPHYLAXIS
     Dosage: 40 MG, UNK
     Route: 048
     Dates: start: 20090618
  2. TASIGNA [Suspect]
     Indication: CHRONIC MYELOID LEUKAEMIA
     Dosage: 800 MG, QD
     Route: 048
     Dates: start: 20090507, end: 20100505
  3. TASIGNA [Suspect]
     Dosage: 400 MG, QD
     Route: 048
     Dates: start: 20100506, end: 20101201
  4. TASIGNA [Suspect]
     Dosage: 600 MG, QD
     Route: 048
     Dates: start: 20101209
  5. PURSENNID [Concomitant]
     Indication: PROPHYLAXIS
     Dosage: 24 MG, UNK
     Route: 048
  6. LANSOPRAZOLE [Concomitant]
     Dosage: 15 MG, UNK
     Route: 048
     Dates: start: 20090514, end: 20090617

REACTIONS (7)
  - BLOOD UREA INCREASED [None]
  - BLOOD URIC ACID INCREASED [None]
  - NAUSEA [None]
  - ABDOMINAL PAIN UPPER [None]
  - CONSTIPATION [None]
  - BLOOD CREATININE INCREASED [None]
  - CEREBRAL INFARCTION [None]
